FAERS Safety Report 24118920 (Version 1)
Quarter: 2024Q3

REPORT INFORMATION
  Report Type: Spontaneous
  Country: US (occurrence: US)
  Receive Date: 20240722
  Receipt Date: 20240722
  Transmission Date: 20241016
  Serious: No
  Sender: MILLICENT HOLDINGS
  Company Number: US-Millicent Holdings Ltd.-MILL20241039

PATIENT
  Age: 86 Year
  Sex: Female

DRUGS (1)
  1. INTRAROSA [Suspect]
     Active Substance: PRASTERONE
     Indication: Vaginal disorder
     Dosage: UNKNOWN
     Route: 067

REACTIONS (2)
  - Off label use [Unknown]
  - Contraindicated product prescribed [Unknown]
